FAERS Safety Report 10636187 (Version 1)
Quarter: 2014Q4

REPORT INFORMATION
  Report Type: Spontaneous
  Country: BE (occurrence: BE)
  Receive Date: 20141205
  Receipt Date: 20141205
  Transmission Date: 20150529
  Serious: Yes (Hospitalization)
  Sender: FDA-Public Use
  Company Number: BE-ABBVIE-14P-013-1317000-00

PATIENT
  Age: 44 Year
  Sex: Female

DRUGS (1)
  1. BICLAR UNO [Suspect]
     Active Substance: CLARITHROMYCIN
     Indication: EAR INFECTION
     Route: 048
     Dates: start: 20141124

REACTIONS (2)
  - Neuritis [Unknown]
  - Paresis [Unknown]

NARRATIVE: CASE EVENT DATE: 201411
